FAERS Safety Report 7986356-1 (Version None)
Quarter: 2011Q4

REPORT INFORMATION
  Report Type: 
  Country: None (occurrence: None)
  Receive Date: 20111216
  Receipt Date: 20101119
  Transmission Date: 20120403
  Serious: No
  Sender: FDA-Public Use
  Company Number: US-GLAXOSMITHKLINE-A0894251A

PATIENT
  Age: 85 Year
  Sex: Male

DRUGS (3)
  1. SPIRONOLACTONE [Concomitant]
  2. ASPIRIN [Concomitant]
  3. COREG CR [Suspect]
     Indication: CARDIAC FAILURE CONGESTIVE
     Dosage: 10MG PER DAY
     Route: 048
     Dates: start: 20101118

REACTIONS (1)
  - DIARRHOEA [None]
